FAERS Safety Report 18617265 (Version 1)
Quarter: 2020Q4

REPORT INFORMATION
  Report Type: Spontaneous
  Country: US (occurrence: US)
  Receive Date: 20201214
  Receipt Date: 20201214
  Transmission Date: 20210114
  Serious: Yes (Life-Threatening, Hospitalization)
  Sender: FDA-Public Use
  Company Number: None

PATIENT
  Age: 27 Year
  Sex: Male
  Weight: 85.5 kg

DRUGS (4)
  1. ORGANIC MAGNESIUM [Concomitant]
  2. ORGANIC VITAMIN D3 [Concomitant]
  3. CBD GUMMIES FROM HEMP 300 MG [Suspect]
     Active Substance: CANNABIDIOL\HERBALS
     Indication: ANTIINFLAMMATORY THERAPY
     Dosage: ?          OTHER STRENGTH:UNKNOWN;QUANTITY:3 GUMMIES;?
     Route: 048
     Dates: start: 20201204, end: 20201204
  4. ORGANIC LIQUID WHEY PROTEIN POWDER [Concomitant]

REACTIONS (12)
  - Tachyphrenia [None]
  - Hallucination [None]
  - Patient restraint [None]
  - Movement disorder [None]
  - Balance disorder [None]
  - Chest pain [None]
  - Feeling abnormal [None]
  - Heart rate increased [None]
  - Vomiting [None]
  - Memory impairment [None]
  - Aggression [None]
  - Burning sensation [None]

NARRATIVE: CASE EVENT DATE: 20201204
